FAERS Safety Report 9518202 (Version 1)
Quarter: 2013Q3

REPORT INFORMATION
  Report Type: Spontaneous
  Country: GB (occurrence: None)
  Receive Date: 20130910
  Receipt Date: 20130910
  Transmission Date: 20140515
  Serious: Yes (Life-Threatening, Hospitalization, Other)
  Sender: FDA-Public Use
  Company Number: AUR-APL-2013-07358

PATIENT
  Age: 81 Year
  Sex: Male

DRUGS (2)
  1. AMOXICILLIN [Suspect]
     Indication: LOWER RESPIRATORY TRACT INFECTION
     Dosage: 750 MG (250 MG,3 IN 1 D),ORAL
     Route: 048
     Dates: start: 20121016, end: 20121022
  2. PARACETAMOL (PARACETAMOL) [Concomitant]

REACTIONS (3)
  - Renal failure acute [None]
  - Upper gastrointestinal haemorrhage [None]
  - Treatment failure [None]
